FAERS Safety Report 8530669-1 (Version None)
Quarter: 2012Q3

REPORT INFORMATION
  Report Type: 
  Country: None (occurrence: None)
  Receive Date: 20120723
  Receipt Date: 20120521
  Transmission Date: 20120928
  Serious: No
  Sender: FDA-Public Use
  Company Number: US-TEVA-333790USA

PATIENT
  Sex: Female

DRUGS (8)
  1. BECLOMETHASONE DIPROPIONATE [Concomitant]
  2. ATORVASTATIN [Concomitant]
  3. PRINZIDE [Concomitant]
  4. FISH OIL [Concomitant]
  5. BUDESONIDE [Concomitant]
  6. ALBUTEROL SULATE [Concomitant]
  7. ASCORBIC ACID [Concomitant]
  8. TRIAMCINOLONE [Suspect]
     Route: 045
     Dates: start: 20120106, end: 20120222

REACTIONS (13)
  - PRODUCT SUBSTITUTION ISSUE [None]
  - NASAL DISCOMFORT [None]
  - THROAT IRRITATION [None]
  - MALAISE [None]
  - FEELING ABNORMAL [None]
  - SINUS DISORDER [None]
  - RHINORRHOEA [None]
  - OROPHARYNGEAL PAIN [None]
  - INSOMNIA [None]
  - FATIGUE [None]
  - RHINITIS [None]
  - SINUS HEADACHE [None]
  - NASAL CONGESTION [None]
